FAERS Safety Report 7812617-2 (Version None)
Quarter: 2011Q4

REPORT INFORMATION
  Report Type: 
  Country: None (occurrence: None)
  Receive Date: 20111013
  Receipt Date: 20110627
  Transmission Date: 20120403
  Serious: No
  Sender: FDA-Public Use
  Company Number: US-NOVEN-11US002705

PATIENT
  Sex: Female

DRUGS (3)
  1. HYDROCODONE BITARTRATE [Concomitant]
     Indication: BREAKTHROUGH PAIN
     Dosage: UNK
     Route: 048
  2. FENTANYL [Suspect]
     Indication: RHEUMATOID ARTHRITIS
  3. FENTANYL [Suspect]
     Indication: FIBROMYALGIA
     Dosage: 50 UG, Q72H
     Route: 062
     Dates: start: 20110501

REACTIONS (5)
  - INADEQUATE ANALGESIA [None]
  - DRUG ADMINISTRATION ERROR [None]
  - HOT FLUSH [None]
  - AFFECT LABILITY [None]
  - PRODUCT QUALITY ISSUE [None]
